FAERS Safety Report 16873289 (Version 3)
Quarter: 2019Q4

REPORT INFORMATION
  Report Type: Spontaneous
  Country: JP (occurrence: JP)
  Receive Date: 20191001
  Receipt Date: 20191129
  Transmission Date: 20200122
  Serious: Yes (Death, Hospitalization)
  Sender: FDA-Public Use
  Company Number: JP-ASTRAZENECA-2019SE81784

PATIENT
  Age: 27962 Day
  Sex: Male
  Weight: 45 kg

DRUGS (3)
  1. TAGRISSO [Suspect]
     Active Substance: OSIMERTINIB
     Indication: NON-SMALL CELL LUNG CANCER
     Route: 048
     Dates: start: 20190108, end: 20190516
  2. LOXOPROFEN NA [Concomitant]
     Active Substance: LOXOPROFEN SODIUM
     Indication: PAIN MANAGEMENT
     Dosage: 60.0MG AS REQUIRED
     Route: 048
     Dates: start: 20190517, end: 20190718
  3. REBAMIPIDE [Concomitant]
     Active Substance: REBAMIPIDE
     Indication: PAIN MANAGEMENT
     Dosage: 100.0MG AS REQUIRED
     Route: 048
     Dates: start: 20190517, end: 20190718

REACTIONS (4)
  - Metastases to liver [Fatal]
  - Blood sodium decreased [Recovered/Resolved]
  - Interstitial lung disease [Fatal]
  - Metastases to bone [Fatal]

NARRATIVE: CASE EVENT DATE: 20190517
